FAERS Safety Report 5156592-0 (Version None)
Quarter: 2006Q4

REPORT INFORMATION
  Report Type: 
  Country: None (occurrence: None)
  Receive Date: 20061115
  Receipt Date: 20061030
  Transmission Date: 20070319
  Serious: Yes (Hospitalization)
  Sender: FDA-Public Use
  Company Number: 2006137867

PATIENT
  Age: 51 Year
  Sex: Female

DRUGS (10)
  1. DIPHENHYDRAMINE HCL [Suspect]
     Dosage: ORAL
     Route: 048
     Dates: start: 20060401, end: 20060401
  2. RANITIDINE [Suspect]
     Dates: start: 20060401, end: 20060401
  3. TRAMADOL HCL [Suspect]
     Dates: start: 20060401, end: 20060401
  4. CARISOPRODOL [Suspect]
     Dates: start: 20060401, end: 20060401
  5. SSRI (SSRI) [Suspect]
     Dates: start: 20060401, end: 20060401
  6. ATENOLOL [Suspect]
     Dates: start: 20060401, end: 20060401
  7. CIMETIDINE [Suspect]
     Dates: start: 20060401, end: 20060401
  8. OTHER HYPNOTICS AND SEDATIVES [Suspect]
     Dates: start: 20060401, end: 20060401
  9. DRUG,  UNSPECIFIED [Suspect]
     Dates: start: 20060401, end: 20060401
  10. ANTIPSYCHOTICS              (ANTIPSYCHOTICS) [Suspect]
     Dates: start: 20060401, end: 20060401

REACTIONS (12)
  - ABNORMAL BEHAVIOUR [None]
  - BLOOD BICARBONATE DECREASED [None]
  - BLOOD PH INCREASED [None]
  - DRUG ABUSER [None]
  - DRUG SCREEN POSITIVE [None]
  - ELECTROCARDIOGRAM CHANGE [None]
  - ELECTROCARDIOGRAM QRS COMPLEX PROLONGED [None]
  - GASTRIC LAVAGE ABNORMAL [None]
  - HYPERTENSION [None]
  - INTENTIONAL DRUG MISUSE [None]
  - PO2 INCREASED [None]
  - RESPIRATORY RATE INCREASED [None]
